FAERS Safety Report 17158731 (Version 1)
Quarter: 2019Q4

REPORT INFORMATION
  Report Type: Spontaneous
  Country: US (occurrence: US)
  Receive Date: 20191216
  Receipt Date: 20191216
  Transmission Date: 20200122
  Serious: Yes (Other)
  Sender: FDA-Public Use
  Company Number: US-BAYER-2019-226125

PATIENT
  Age: 91 Year
  Sex: Female
  Weight: 59 kg

DRUGS (3)
  1. WATER. [Concomitant]
     Active Substance: WATER
  2. MIRALAX [Suspect]
     Active Substance: POLYETHYLENE GLYCOL 3350
     Dosage: 17 G, QD
     Dates: start: 2018
  3. ANTIHISTAMINE ALLERGY (DIPHENHYDRAMINE HYDROCHLORIDE) [Concomitant]
     Active Substance: DIPHENHYDRAMINE HYDROCHLORIDE

REACTIONS (4)
  - Product taste abnormal [None]
  - Product odour abnormal [None]
  - Hip fracture [None]
  - Drug dependence [None]
